FAERS Safety Report 10310060 (Version 1)
Quarter: 2014Q3

REPORT INFORMATION
  Report Type: Spontaneous
  Country: FR (occurrence: FR)
  Receive Date: 20140717
  Receipt Date: 20140717
  Transmission Date: 20150326
  Serious: Yes (Hospitalization)
  Sender: FDA-Public Use
  Company Number: FR-MERCK-1407FRA003598

PATIENT
  Age: 90 Year
  Sex: Male
  Weight: 83 kg

DRUGS (1)
  1. INVANZ [Suspect]
     Active Substance: ERTAPENEM SODIUM
     Indication: BACTERAEMIA
     Dosage: 1 G, UNKNOWN
     Route: 042
     Dates: start: 20140606, end: 20140616

REACTIONS (1)
  - Oedema peripheral [Recovered/Resolved with Sequelae]

NARRATIVE: CASE EVENT DATE: 20140617
